FAERS Safety Report 5941925-5 (Version None)
Quarter: 2008Q4

REPORT INFORMATION
  Report Type: 
  Country: None (occurrence: None)
  Receive Date: 20081105
  Receipt Date: 20081030
  Transmission Date: 20090506
  Serious: Yes (Hospitalization)
  Sender: FDA-Public Use
  Company Number: FR-ASTRAZENECA-2008CG01601

PATIENT
  Age: 30174 Day
  Sex: Female

DRUGS (8)
  1. ZESTORETIC [Suspect]
     Route: 048
     Dates: start: 20000101, end: 20080806
  2. PRAVASTATIN [Suspect]
     Dates: start: 20050101, end: 20080912
  3. MOPRAL [Concomitant]
  4. SERESTA [Concomitant]
  5. VASTAREL [Concomitant]
  6. FLEBOSMIL [Concomitant]
  7. MOVICOL [Concomitant]
  8. MACULA-Z [Concomitant]
     Indication: MACULAR DEGENERATION
     Dates: start: 20080401

REACTIONS (1)
  - EOSINOPHILIC PNEUMONIA [None]
